FAERS Safety Report 8387254-4 (Version None)
Quarter: 2012Q2

REPORT INFORMATION
  Report Type: 
  Country: None (occurrence: None)
  Receive Date: 20120525
  Receipt Date: 20120515
  Transmission Date: 20120825
  Serious: Yes (Other)
  Sender: FDA-Public Use
  Company Number: JP-UCBSA-057745

PATIENT
  Age: 71 Year
  Sex: Female

DRUGS (4)
  1. XYZAL [Suspect]
     Indication: SEASONAL ALLERGY
     Route: 048
     Dates: start: 20120410, end: 20120509
  2. MICARDIS [Concomitant]
     Route: 048
     Dates: start: 20120410, end: 20120509
  3. AMLODIPINE [Concomitant]
     Route: 048
     Dates: start: 20120410, end: 20120509
  4. MEILAX [Concomitant]
     Route: 048
     Dates: start: 20120410, end: 20120509

REACTIONS (3)
  - PLATELET COUNT DECREASED [None]
  - RASH [None]
  - ERYTHEMA NODOSUM [None]
